FAERS Safety Report 7912511-2 (Version None)
Quarter: 2011Q4

REPORT INFORMATION
  Report Type: 
  Country: None (occurrence: None)
  Receive Date: 20111114
  Receipt Date: 20111108
  Transmission Date: 20120403
  Serious: No
  Sender: FDA-Public Use
  Company Number: US-PFIZER INC-2011274050

PATIENT
  Age: 75 Year
  Sex: Female

DRUGS (2)
  1. PREMARIN [Suspect]
     Dosage: 0.3 MG, UNK
  2. CONJUGATED ESTROGENS [Suspect]
     Dosage: UNK

REACTIONS (7)
  - SLEEP DISORDER [None]
  - HOT FLUSH [None]
  - MADAROSIS [None]
  - DRUG INEFFECTIVE [None]
  - PALPITATIONS [None]
  - DRY SKIN [None]
  - ALOPECIA [None]
